FAERS Safety Report 6187653-5 (Version None)
Quarter: 2009Q2

REPORT INFORMATION
  Report Type: 
  Country: None (occurrence: None)
  Receive Date: 20090511
  Receipt Date: 20090501
  Transmission Date: 20091009
  Serious: No
  Sender: FDA-Public Use
  Company Number: 20096359

PATIENT
  Sex: Male

DRUGS (1)
  1. LIORESAL [Suspect]
     Indication: MUSCLE SPASTICITY
     Dosage: 300-370 MCG DAILY, INTRATHECAL SE
     Route: 037

REACTIONS (5)
  - CATHETER RELATED COMPLICATION [None]
  - HEADACHE [None]
  - NAUSEA [None]
  - PAIN [None]
  - PRURITUS [None]
